FAERS Safety Report 10399230 (Version 4)
Quarter: 2015Q1

REPORT INFORMATION
  Report Type: Report from Study
  Country: US (occurrence: US)
  Receive Date: 20140821
  Receipt Date: 20150302
  Transmission Date: 20150720
  Serious: Yes (Hospitalization)
  Sender: FDA-Public Use
  Company Number: US-ACTELION-A-NJ2014-103809

PATIENT
  Age: 62 Year
  Sex: Male

DRUGS (3)
  1. MACITENTAN [Suspect]
     Active Substance: MACITENTAN
     Indication: COR PULMONALE CHRONIC
     Dosage: 10 MG, UNK
     Route: 048
     Dates: start: 20140214
  2. TYVASO [Concomitant]
     Active Substance: TREPROSTINIL
  3. ADCIRCA [Concomitant]
     Active Substance: TADALAFIL

REACTIONS (6)
  - Liver transplant [Unknown]
  - Complications of transplanted liver [Unknown]
  - Liver function test abnormal [Unknown]
  - Aspartate aminotransferase increased [Unknown]
  - Alanine aminotransferase increased [Unknown]
  - Renal failure [Unknown]

NARRATIVE: CASE EVENT DATE: 201411
